FAERS Safety Report 9496472 (Version 9)
Quarter: 2014Q2

REPORT INFORMATION
  Report Type: Spontaneous
  Country: TR (occurrence: TR)
  Receive Date: 20130904
  Receipt Date: 20140623
  Transmission Date: 20141212
  Serious: Yes (Hospitalization, Other)
  Sender: FDA-Public Use
  Company Number: PHHY2013TR095894

PATIENT
  Age: 46 Year
  Sex: Female
  Weight: 60 kg

DRUGS (12)
  1. GILENYA [Suspect]
     Indication: RELAPSING-REMITTING MULTIPLE SCLEROSIS
     Dosage: 0.5 MG, QD
     Route: 048
     Dates: start: 20130804, end: 20130826
  2. GILENYA [Suspect]
     Dosage: 0.5 MG, QD
     Route: 048
     Dates: start: 20130828, end: 20130830
  3. HIPERSAR PLUS [Concomitant]
     Indication: HYPERTENSION
  4. KAPTORIL [Concomitant]
     Dosage: 25 MG, UNK
  5. PREDNOL-L [Concomitant]
     Dosage: 250 MG AMPOULES
  6. DEMEPRAZOL [Concomitant]
     Dosage: 20 MG, UNK
  7. ANTEPSIN [Concomitant]
  8. LIORESAL [Concomitant]
     Dosage: 10 MG, UNK
  9. NORVASC [Concomitant]
     Dosage: 10 MG, UNK
  10. HUMULIN [Concomitant]
  11. CORASPIN [Concomitant]
     Dosage: 100 MG, UNK
  12. ADALAT CRONO [Concomitant]
     Indication: HYPERTENSION
     Dates: start: 20130826

REACTIONS (58)
  - Cerebral vasoconstriction [Recovering/Resolving]
  - Headache [Recovering/Resolving]
  - Speech disorder [Recovering/Resolving]
  - Sensory loss [Recovering/Resolving]
  - Muscle atrophy [Recovering/Resolving]
  - Confusional state [Recovered/Resolved]
  - Pancytopenia [Recovering/Resolving]
  - Hypertonia [Recovering/Resolving]
  - Decreased vibratory sense [Recovering/Resolving]
  - Muscular weakness [Recovering/Resolving]
  - Gait disturbance [Recovering/Resolving]
  - Cerebellar syndrome [Recovering/Resolving]
  - Central nervous system lesion [Recovering/Resolving]
  - Aphasia [Recovered/Resolved]
  - Anaemia [Recovering/Resolving]
  - Hypokalaemia [Recovered/Resolved]
  - Blood pressure increased [Not Recovered/Not Resolved]
  - Red blood cell count increased [Recovering/Resolving]
  - Computerised tomogram abnormal [Recovering/Resolving]
  - Monocyte count decreased [Recovering/Resolving]
  - Monocyte percentage decreased [Recovering/Resolving]
  - Eosinophil percentage decreased [Recovering/Resolving]
  - Basophil percentage decreased [Recovering/Resolving]
  - Blood glucose increased [Recovering/Resolving]
  - Platelet count decreased [Recovering/Resolving]
  - White blood cell count increased [Recovering/Resolving]
  - Lymphocyte count decreased [Recovering/Resolving]
  - Lymphocyte percentage decreased [Recovering/Resolving]
  - White blood cell count decreased [Recovering/Resolving]
  - Red blood cell count decreased [Recovering/Resolving]
  - Neutrophil percentage increased [Recovering/Resolving]
  - Haematocrit decreased [Recovering/Resolving]
  - Mean cell haemoglobin increased [Recovering/Resolving]
  - Red cell distribution width increased [Recovering/Resolving]
  - Thyroxine free increased [Recovering/Resolving]
  - Activated partial thromboplastin time shortened [Recovering/Resolving]
  - Iron binding capacity total decreased [Recovering/Resolving]
  - Vitamin B12 increased [Recovering/Resolving]
  - Prothrombin time shortened [Recovering/Resolving]
  - Serum ferritin increased [Recovering/Resolving]
  - Clonus [Recovering/Resolving]
  - Blood iron increased [Recovering/Resolving]
  - Blood urea increased [Recovering/Resolving]
  - Blood uric acid decreased [Recovering/Resolving]
  - Blood creatine phosphokinase increased [Recovering/Resolving]
  - Blood lactate dehydrogenase increased [Recovering/Resolving]
  - Blood alkaline phosphatase decreased [Recovering/Resolving]
  - Blood calcium decreased [Recovering/Resolving]
  - Glomerular filtration rate decreased [Recovering/Resolving]
  - Blood potassium decreased [Recovering/Resolving]
  - Blood chloride decreased [Recovering/Resolving]
  - Haemoglobin decreased [Recovering/Resolving]
  - Neutrophil count increased [Recovering/Resolving]
  - Blood sodium decreased [Recovering/Resolving]
  - Dysarthria [Recovering/Resolving]
  - Aspartate aminotransferase increased [Recovering/Resolving]
  - Alanine aminotransferase increased [Recovering/Resolving]
  - Fungal infection [Recovering/Resolving]
